FAERS Safety Report 5139599-9 (Version None)
Quarter: 2006Q4

REPORT INFORMATION
  Report Type: 
  Country: None (occurrence: None)
  Receive Date: 20061030
  Receipt Date: 20060905
  Transmission Date: 20070319
  Serious: Yes (Other)
  Sender: FDA-Public Use
  Company Number: BE-ABBOTT-06P-013-0343077-00

PATIENT
  Sex: Female

DRUGS (6)
  1. HUMIRA [Suspect]
     Indication: PSORIATIC ARTHROPATHY
     Route: 058
     Dates: start: 20051107, end: 20060717
  2. HUMIRA [Suspect]
     Indication: POLYARTHRITIS
  3. METHOTREXATE [Concomitant]
     Indication: ARTHRITIS
     Route: 030
  4. FOLIC ACID [Concomitant]
     Indication: ARTHRITIS
  5. MELOXICAM [Concomitant]
     Indication: ARTHRITIS
  6. OMEPRAZOLE [Concomitant]
     Indication: DRUG USE FOR UNKNOWN INDICATION

REACTIONS (3)
  - INJECTION SITE REACTION [None]
  - LYMPHOCYTOSIS [None]
  - NEUTROPHIL COUNT DECREASED [None]
